FAERS Safety Report 8908740 (Version 2)
Quarter: 2012Q4

REPORT INFORMATION
  Report Type: 
  Country: US (occurrence: US)
  Receive Date: 20121114
  Receipt Date: 20121115
  Transmission Date: 20130627
  Serious: Yes (Death, Other)
  Sender: FDA-Public Use
  Company Number: US-ELI_LILLY_AND_COMPANY-US201211002774

PATIENT
  Age: 65 Year
  Sex: Female

DRUGS (2)
  1. EFFIENT [Suspect]
     Dosage: 60 mg, single
     Dates: start: 20121107, end: 20121107
  2. INTEGRILIN [Concomitant]

REACTIONS (2)
  - Death [Fatal]
  - Haemorrhage [Not Recovered/Not Resolved]
